FAERS Safety Report 7476243-X (Version None)
Quarter: 2011Q2

REPORT INFORMATION
  Report Type: 
  Country: None (occurrence: None)
  Receive Date: 20110512
  Receipt Date: 20110218
  Transmission Date: 20111010
  Serious: Yes (Hospitalization, Other)
  Sender: FDA-Public Use
  Company Number: PHHY2011BR13817

PATIENT
  Age: 76 Year
  Sex: Female

DRUGS (1)
  1. FORMOTEROL FUMARATE [Suspect]
     Dosage: 12/400 MCG

REACTIONS (8)
  - CARDIAC DISORDER [None]
  - DYSPNOEA [None]
  - MEMORY IMPAIRMENT [None]
  - MALAISE [None]
  - LUNG DISORDER [None]
  - MONOPLEGIA [None]
  - CARDIAC FIBRILLATION [None]
  - WHEELCHAIR USER [None]
